FAERS Safety Report 20264858 (Version 1)
Quarter: 2021Q4

REPORT INFORMATION
  Report Type: Spontaneous
  Country: US (occurrence: None)
  Receive Date: 20211230
  Receipt Date: 20211230
  Transmission Date: 20220303
  Serious: No
  Sender: FDA-Public Use
  Company Number: None

PATIENT
  Age: 59 Year
  Sex: Female

DRUGS (1)
  1. SKYRIZI [Suspect]
     Active Substance: RISANKIZUMAB-RZAA
     Indication: Psoriasis
     Dosage: INJECTE 150MG (1 SYRINGE) SUBCUTANEOUSLY  EVERY 12 WEEKS  AS DIRECTED
     Route: 058
     Dates: start: 202008

REACTIONS (1)
  - Urinary tract infection [None]
